FAERS Safety Report 23686752 (Version 1)
Quarter: 2024Q1

REPORT INFORMATION
  Report Type: Spontaneous
  Country: US (occurrence: None)
  Receive Date: 20240328
  Receipt Date: 20240328
  Transmission Date: 20240410
  Serious: Yes (Death)
  Sender: FDA-Public Use
  Company Number: None

PATIENT
  Age: 81 Year
  Sex: Male

DRUGS (14)
  1. OFEV [Suspect]
     Active Substance: NINTEDANIB
     Indication: Interstitial lung disease
     Dosage: FREQUENCY : TWICE A DAY;?
     Route: 048
     Dates: start: 20211115, end: 20230507
  2. TYVASO [Concomitant]
     Active Substance: TREPROSTINIL
  3. FLONASE [Suspect]
     Active Substance: FLUTICASONE PROPIONATE
  4. WIXELA INHUB [Concomitant]
     Active Substance: FLUTICASONE PROPIONATE\SALMETEROL XINAFOATE
  5. ALBUTEROL SULFATE [Concomitant]
     Active Substance: ALBUTEROL SULFATE
  6. MONTELUKAST [Concomitant]
     Active Substance: MONTELUKAST SODIUM
  7. TERAZOSIN [Concomitant]
  8. aspirin [Concomitant]
  9. HUMULIN N [Concomitant]
     Active Substance: INSULIN HUMAN
  10. HUMULIN R [Concomitant]
     Active Substance: INSULIN HUMAN
  11. ATORVASTATIN [Concomitant]
  12. LOPERAMIDE [Concomitant]
     Active Substance: LOPERAMIDE
  13. OMEPRAZOLE [Concomitant]
     Active Substance: OMEPRAZOLE
  14. ciclopirox top soln [Concomitant]

REACTIONS (1)
  - Death [None]

NARRATIVE: CASE EVENT DATE: 20230507
